FAERS Safety Report 7665317-6 (Version None)
Quarter: 2011Q3

REPORT INFORMATION
  Report Type: 
  Country: None (occurrence: None)
  Receive Date: 20110806
  Receipt Date: 20110520
  Transmission Date: 20111222
  Serious: No
  Sender: FDA-Public Use
  Company Number: US-ABBOTT-11P-163-0727346-00

PATIENT
  Sex: Female
  Weight: 79.45 kg

DRUGS (5)
  1. ASMANEX TWISTHALER [Concomitant]
     Indication: PRODUCT USED FOR UNKNOWN INDICATION
  2. NATURAL EXTRACT FOR THYROID BY PRESCIPTION [Concomitant]
     Indication: PRODUCT USED FOR UNKNOWN INDICATION
  3. ASTELINE [Concomitant]
     Indication: PRODUCT USED FOR UNKNOWN INDICATION
  4. NIASPAN [Suspect]
     Indication: BLOOD CHOLESTEROL ABNORMAL
     Dosage: AT BEDTIME
     Dates: start: 20110401, end: 20110519
  5. CRESTOR [Concomitant]
     Indication: PRODUCT USED FOR UNKNOWN INDICATION

REACTIONS (6)
  - FLUSHING [None]
  - PARAESTHESIA [None]
  - DRUG DOSE OMISSION [None]
  - PRURITUS [None]
  - FEELING HOT [None]
  - ERYTHEMA [None]
